FAERS Safety Report 23577981 (Version 1)
Quarter: 2024Q1

REPORT INFORMATION
  Report Type: Spontaneous
  Country: NL (occurrence: NL)
  Receive Date: 20240228
  Receipt Date: 20240228
  Transmission Date: 20240409
  Serious: Yes (Other)
  Sender: FDA-Public Use
  Company Number: NL-ABBVIE-5648820

PATIENT
  Sex: Male

DRUGS (4)
  1. EPCORITAMAB [Suspect]
     Active Substance: EPCORITAMAB
     Indication: Diffuse large B-cell lymphoma
     Dosage: C1 WEEKLY, DAY 1 (0,16MG) AND 8 (0,8MG) AND FIRST FULL DOSE ON DAY 15 (48MG) DURATION TEXT: DOSES ES
     Route: 058
  2. EPCORITAMAB [Suspect]
     Active Substance: EPCORITAMAB
     Dosage: C2-3 WEEKLY (48MG), DURATION TEXT: UNTIL PROGRESSION OR INTOLERABILITY
     Route: 058
  3. EPCORITAMAB [Suspect]
     Active Substance: EPCORITAMAB
     Dosage: C4-9 EVERY 2 WEEKS (48MG)
     Route: 058
  4. EPCORITAMAB [Suspect]
     Active Substance: EPCORITAMAB
     Dosage: C 10+ EVERY 4 WEEKS (48MG)
     Route: 058
     Dates: end: 20240103

REACTIONS (1)
  - Diffuse large B-cell lymphoma stage IV [Not Recovered/Not Resolved]
